FAERS Safety Report 7179473-X (Version None)
Quarter: 2010Q4

REPORT INFORMATION
  Report Type: 
  Country: None (occurrence: None)
  Receive Date: 20101221
  Receipt Date: 20101208
  Transmission Date: 20110411
  Serious: Yes (Hospitalization, Other)
  Sender: FDA-Public Use
  Company Number: PHHY2010ZA82484

PATIENT
  Sex: Female

DRUGS (4)
  1. DIOVAN [Suspect]
     Dosage: 160 MG
     Route: 048
     Dates: end: 20100401
  2. EXFORGE [Suspect]
     Dosage: UNK
  3. ELTROXIN [Concomitant]
  4. TOPZOLE [Concomitant]

REACTIONS (8)
  - CHEST PAIN [None]
  - GALLBLADDER DISORDER [None]
  - GALLBLADDER OPERATION [None]
  - HYPERTENSION [None]
  - MALAISE [None]
  - NAUSEA [None]
  - ULCER [None]
  - WEIGHT DECREASED [None]
